FAERS Safety Report 6212584-1 (Version None)
Quarter: 2009Q2

REPORT INFORMATION
  Report Type: 
  Country: None (occurrence: None)
  Receive Date: 20090603
  Receipt Date: 20090526
  Transmission Date: 20091009
  Serious: Yes (Other)
  Sender: FDA-Public Use
  Company Number: US-BAYER-200915028NA

PATIENT
  Age: 36 Year
  Sex: Female
  Weight: 60 kg

DRUGS (3)
  1. YAZ [Suspect]
     Indication: MENSTRUATION IRREGULAR
     Route: 048
     Dates: start: 20080501, end: 20090306
  2. YAZ [Suspect]
     Route: 048
     Dates: start: 20081201, end: 20090305
  3. SYNTHROID [Concomitant]
     Indication: HYPOTHYROIDISM
     Route: 048
     Dates: start: 20000101

REACTIONS (7)
  - ACNE [None]
  - ANXIETY [None]
  - FATIGUE [None]
  - HEADACHE [None]
  - MENTAL DISORDER [None]
  - MOOD SWINGS [None]
  - SOCIAL PHOBIA [None]
